FAERS Safety Report 17230306 (Version 30)
Quarter: 2024Q1

REPORT INFORMATION
  Report Type: Spontaneous
  Country: US (occurrence: US)
  Receive Date: 20200103
  Receipt Date: 20240318
  Transmission Date: 20240410
  Serious: Yes (Life-Threatening, Other)
  Sender: FDA-Public Use
  Company Number: US-PFIZER INC-2020002121

PATIENT
  Age: 67 Year
  Sex: Male

DRUGS (4)
  1. XELJANZ XR [Interacting]
     Active Substance: TOFACITINIB CITRATE
     Indication: Rheumatoid arthritis
     Dosage: TAKE ONE PILL A DAY
     Route: 048
     Dates: start: 201807
  2. XELJANZ XR [Interacting]
     Active Substance: TOFACITINIB CITRATE
     Dosage: TAKE ONE PILL PER WEEK
     Route: 048
     Dates: start: 202311
  3. AMLODIPINE [Concomitant]
     Active Substance: AMLODIPINE BESYLATE
  4. FARXIGA [Concomitant]
     Active Substance: DAPAGLIFLOZIN PROPANEDIOL
     Dosage: UNK

REACTIONS (25)
  - Myocardial infarction [Unknown]
  - Heart valve incompetence [Unknown]
  - Thrombosis [Not Recovered/Not Resolved]
  - Atrial fibrillation [Not Recovered/Not Resolved]
  - Cardiac disorder [Unknown]
  - Neoplasm malignant [Not Recovered/Not Resolved]
  - Spinal operation [Unknown]
  - Gait inability [Not Recovered/Not Resolved]
  - Renal cancer [Not Recovered/Not Resolved]
  - Intracranial aneurysm [Unknown]
  - Aortic aneurysm [Not Recovered/Not Resolved]
  - Diabetes mellitus [Unknown]
  - Drug interaction [Unknown]
  - Back pain [Unknown]
  - Somnolence [Unknown]
  - Malaise [Unknown]
  - Gout [Not Recovered/Not Resolved]
  - General physical health deterioration [Unknown]
  - Vertigo [Unknown]
  - Skin lesion [Unknown]
  - Escherichia infection [Recovering/Resolving]
  - Bone pain [Unknown]
  - Poor quality product administered [Unknown]
  - Product storage error [Unknown]
  - Intentional product misuse [Unknown]

NARRATIVE: CASE EVENT DATE: 20180101
